FAERS Safety Report 18947285 (Version 2)
Quarter: 2021Q1

REPORT INFORMATION
  Report Type: Report from Study
  Country: None (occurrence: US)
  Receive Date: 20210227
  Receipt Date: 20210326
  Transmission Date: 20210420
  Serious: Yes (Hospitalization)
  Sender: FDA-Public Use
  Company Number: US-ABBVIE-21K-163-3767196-00

PATIENT
  Age: 55 Year
  Sex: Male
  Weight: 133.93 kg

DRUGS (3)
  1. REMDESIVIR. [Concomitant]
     Active Substance: REMDESIVIR
     Indication: COVID-19
  2. HUMIRA [Suspect]
     Active Substance: ADALIMUMAB
     Indication: PSORIASIS
     Route: 058
     Dates: start: 201706, end: 202101
  3. MELOXICAM. [Concomitant]
     Active Substance: MELOXICAM
     Indication: HYPERTENSION

REACTIONS (3)
  - Insomnia [Recovered/Resolved]
  - Pain [Recovered/Resolved]
  - COVID-19 pneumonia [Unknown]

NARRATIVE: CASE EVENT DATE: 202101
